FAERS Safety Report 7311588-5 (Version None)
Quarter: 2011Q1

REPORT INFORMATION
  Report Type: 
  Country: None (occurrence: None)
  Receive Date: 20110224
  Receipt Date: 20110215
  Transmission Date: 20110831
  Serious: Yes (Disabling)
  Sender: FDA-Public Use
  Company Number: PT-ASTRAZENECA-2011SE09648

PATIENT
  Age: 63 Year
  Sex: Female
  Weight: 77 kg

DRUGS (2)
  1. CRESTOR [Suspect]
     Indication: DYSLIPIDAEMIA
     Route: 048
     Dates: start: 20101125, end: 20110115
  2. LASIX [Concomitant]
     Indication: FLUID RETENTION
     Route: 048

REACTIONS (2)
  - MYALGIA [None]
  - DYSAESTHESIA [None]
